FAERS Safety Report 4417515-2 (Version None)
Quarter: 2004Q2

REPORT INFORMATION
  Report Type: 
  Country: None (occurrence: None)
  Receive Date: 20040625
  Receipt Date: 20040423
  Transmission Date: 20050107
  Serious: No
  Sender: FDA-Public Use
  Company Number: 206144

PATIENT
  Age: 53 Year
  Sex: Female
  Weight: 48.1 kg

DRUGS (5)
  1. AVASTIN [Suspect]
     Indication: COLORECTAL CANCER METASTATIC
     Dosage: INTRAVENOUS
     Route: 042
     Dates: start: 20040312
  2. FLUOROURACIL [Concomitant]
  3. LEUCOVORIN CALCIUM [Concomitant]
  4. DECADRON [Concomitant]
  5. ALOXI (PALONOSETRON) [Concomitant]

REACTIONS (1)
  - THROMBOCYTOPENIA [None]
